FAERS Safety Report 8610696-6 (Version None)
Quarter: 2012Q3

REPORT INFORMATION
  Report Type: 
  Country: None (occurrence: None)
  Receive Date: 20120822
  Receipt Date: 20120813
  Transmission Date: 20120928
  Serious: Yes (Hospitalization)
  Sender: FDA-Public Use
  Company Number: CN-NOVOPROD-357603

PATIENT
  Age: 56 Year
  Sex: Female
  Weight: 64.3 kg

DRUGS (3)
  1. ASPIRIN [Concomitant]
     Dosage: 100 MG, QD
     Route: 048
     Dates: start: 20070101
  2. VALSARTAN [Concomitant]
  3. NOVOMIX 30 PENFILL 3 ML [Suspect]
     Indication: TYPE 2 DIABETES MELLITUS
     Dosage: 52 IU, BID
     Dates: start: 20120628

REACTIONS (1)
  - DIZZINESS [None]
